FAERS Safety Report 6145517-7 (Version None)
Quarter: 2009Q2

REPORT INFORMATION
  Report Type: 
  Country: None (occurrence: None)
  Receive Date: 20090402
  Receipt Date: 20090320
  Transmission Date: 20091009
  Serious: Yes (Other)
  Sender: FDA-Public Use
  Company Number: PHO-2008-051

PATIENT

DRUGS (2)
  1. PHOTOFRIN [Suspect]
     Indication: GLIOBLASTOMA MULTIFORME
     Dosage: SEE IMAGE
     Route: 042
  2. 5 AMINO-LEVULENIC-ACID (5 ALA) [Suspect]
     Indication: GLIOBLASTOMA MULTIFORME
     Dosage: 20 MG/KG ORAL
     Route: 048

REACTIONS (1)
  - DEEP VEIN THROMBOSIS [None]
